FAERS Safety Report 10344140 (Version 1)
Quarter: 2014Q3

REPORT INFORMATION
  Report Type: Report from Study
  Country: CA (occurrence: None)
  Receive Date: 20140724
  Receipt Date: 20140724
  Transmission Date: 20150326
  Serious: Yes (Hospitalization)
  Sender: FDA-Public Use
  Company Number: CA-016406

PATIENT
  Age: 76 Year
  Sex: Male

DRUGS (7)
  1. FIRMAGON [Suspect]
     Active Substance: DEGARELIX ACETATE
     Indication: PROSTATE CANCER
     Route: 058
     Dates: start: 20111023
  2. HYDROMORPHONE [Concomitant]
     Active Substance: HYDROMORPHONE
  3. FLOMAX [Concomitant]
     Active Substance: TAMSULOSIN HYDROCHLORIDE
  4. PMS ACETAMINOPHEN [Concomitant]
  5. RABEPRAZOLE [Concomitant]
     Active Substance: RABEPRAZOLE
  6. VITAMIN D [Concomitant]
     Active Substance: CHOLECALCIFEROL
  7. CALCIUM [Concomitant]
     Active Substance: CALCIUM

REACTIONS (2)
  - Chest pain [None]
  - Chest discomfort [None]

NARRATIVE: CASE EVENT DATE: 20140618
